FAERS Safety Report 4269405-6 (Version None)
Quarter: 2004Q1

REPORT INFORMATION
  Report Type: 
  Country: None (occurrence: None)
  Receive Date: 20040112
  Receipt Date: 20040112
  Transmission Date: 20041129
  Serious: Yes (Hospitalization)
  Sender: FDA-Public Use
  Company Number: None

PATIENT
  Age: 80 Year
  Sex: Male

DRUGS (3)
  1. PROPRANOLOL [Suspect]
     Indication: HYPERTENSION
     Dosage: 10 MG BID
     Dates: start: 19970101
  2. GLYBURIDE [Concomitant]
  3. FOSINOPRIL SODIUM [Concomitant]

REACTIONS (2)
  - BRADYCARDIA [None]
  - SYNCOPE [None]
